FAERS Safety Report 21944142 (Version 1)
Quarter: 2023Q1

REPORT INFORMATION
  Report Type: Report from Study
  Country: CN (occurrence: CN)
  Receive Date: 20230202
  Receipt Date: 20230202
  Transmission Date: 20230418
  Serious: No
  Sender: FDA-Public Use
  Company Number: CN-UCBSA-2021049664

PATIENT

DRUGS (1)
  1. VIMPAT [Suspect]
     Active Substance: LACOSAMIDE
     Indication: Epilepsy
     Dosage: UNK

REACTIONS (43)
  - Sedation [Unknown]
  - Dizziness [Unknown]
  - Fatigue [Unknown]
  - Headache [Unknown]
  - Somnolence [Unknown]
  - Vertigo [Unknown]
  - Diplopia [Unknown]
  - Ataxia [Unknown]
  - Vision blurred [Unknown]
  - Nystagmus [Unknown]
  - Gait disturbance [Unknown]
  - Anxiety [Unknown]
  - Depression [Unknown]
  - Insomnia [Unknown]
  - Memory impairment [Unknown]
  - Asthenia [Unknown]
  - Cognitive disorder [Unknown]
  - Paraesthesia [Unknown]
  - Nausea [Unknown]
  - Vomiting [Unknown]
  - Dyspepsia [Unknown]
  - Abdominal discomfort [Unknown]
  - Diarrhoea [Unknown]
  - Nasopharyngitis [Unknown]
  - Upper respiratory tract infection [Unknown]
  - Influenza [Unknown]
  - Electrocardiogram PR prolongation [Unknown]
  - Palpitations [Unknown]
  - Fall [Unknown]
  - Tremor [Unknown]
  - Behaviour disorder [Unknown]
  - Irritability [Unknown]
  - Rash [Unknown]
  - Pruritus [Unknown]
  - Dry mouth [Unknown]
  - Chest pain [Unknown]
  - Back pain [Unknown]
  - Weight increased [Unknown]
  - Abdominal pain [Unknown]
  - Weight decreased [Unknown]
  - Balance disorder [Unknown]
  - Bradycardia [Unknown]
  - Atrioventricular block [Unknown]
